FAERS Safety Report 9540800 (Version 8)
Quarter: 2014Q1

REPORT INFORMATION
  Report Type: Report from Study
  Country: US (occurrence: US)
  Receive Date: 20130920
  Receipt Date: 20140317
  Transmission Date: 20141002
  Serious: Yes (Hospitalization)
  Sender: FDA-Public Use
  Company Number: PHHO2013US011885

PATIENT
  Age: 50 Year
  Sex: Female
  Weight: 56.69 kg

DRUGS (6)
  1. BLINDED BKM120 [Suspect]
     Indication: BREAST CANCER METASTATIC
     Dosage: 100 MG, UNK
     Route: 048
     Dates: start: 20130627, end: 20130830
  2. BLINDED NO TREATMENT RECEIVED [Suspect]
     Indication: BREAST CANCER METASTATIC
     Dosage: 100 MG, UNK
     Route: 048
     Dates: start: 20130627, end: 20130830
  3. BLINDED PLACEBO [Suspect]
     Indication: BREAST CANCER METASTATIC
     Dosage: 100 MG, UNK
     Route: 048
     Dates: start: 20130627, end: 20130830
  4. COMPARATOR FULVESTRANT [Suspect]
     Indication: BREAST CANCER
     Dosage: 500 MG, UNK
     Route: 030
     Dates: start: 20130612, end: 20130904
  5. DEXAMETHASONE SANDOZ [Suspect]
     Indication: RASH
     Dosage: 4 MG, QD
     Route: 048
     Dates: start: 20130831, end: 20130903
  6. HYDROCORTISONE [Concomitant]
     Indication: RASH
     Dosage: 1 %, AS NEEDED
     Route: 061
     Dates: start: 20130708, end: 20130910

REACTIONS (9)
  - Gastritis [Recovered/Resolved]
  - Urinary tract infection [Recovered/Resolved]
  - Pneumonia aspiration [Recovered/Resolved]
  - Oesophageal stenosis [Recovered/Resolved with Sequelae]
  - Obstruction gastric [Recovered/Resolved]
  - Ascites [Unknown]
  - Hypertension [Not Recovered/Not Resolved]
  - Tachycardia [Recovered/Resolved]
  - Dyspnoea [Not Recovered/Not Resolved]
